FAERS Safety Report 16936441 (Version 1)
Quarter: 2019Q4

REPORT INFORMATION
  Report Type: Spontaneous
  Country: PG (occurrence: PG)
  Receive Date: 20191018
  Receipt Date: 20191018
  Transmission Date: 20200122
  Serious: Yes (Death, Hospitalization)
  Sender: FDA-Public Use
  Company Number: PG-JNJFOC-20191014862

PATIENT
  Age: 30 Year
  Sex: Female
  Weight: 31 kg

DRUGS (5)
  1. CYCLOSERINE. [Suspect]
     Active Substance: CYCLOSERINE
     Indication: PULMONARY TUBERCULOSIS
     Route: 048
     Dates: start: 20190727, end: 20190810
  2. CLOFAZIMINE [Suspect]
     Active Substance: CLOFAZIMINE
     Indication: PULMONARY TUBERCULOSIS
     Route: 048
     Dates: start: 20190727, end: 20190810
  3. LEVOFLOXACIN. [Suspect]
     Active Substance: LEVOFLOXACIN
     Indication: PULMONARY TUBERCULOSIS
     Route: 048
     Dates: start: 20190727, end: 20190810
  4. PYRIDOXINE [Suspect]
     Active Substance: PYRIDOXINE
     Indication: PULMONARY TUBERCULOSIS
     Route: 048
     Dates: start: 20190727, end: 20190810
  5. BEDAQUILINE [Suspect]
     Active Substance: BEDAQUILINE
     Indication: PULMONARY TUBERCULOSIS
     Route: 048
     Dates: start: 20190727, end: 20190810

REACTIONS (5)
  - Oropharyngeal candidiasis [Unknown]
  - Anaemia [Unknown]
  - Generalised oedema [Unknown]
  - Death [Fatal]
  - Loss of consciousness [Unknown]

NARRATIVE: CASE EVENT DATE: 20190810
